FAERS Safety Report 16761131 (Version 1)
Quarter: 2019Q3

REPORT INFORMATION
  Report Type: Spontaneous
  Country: US (occurrence: US)
  Receive Date: 20190830
  Receipt Date: 20190830
  Transmission Date: 20191005
  Serious: No
  Sender: FDA-Public Use
  Company Number: US-ANIPHARMA-2019-US-000638

PATIENT
  Age: 58 Year
  Sex: Male
  Weight: 88.45 kg

DRUGS (4)
  1. ARIMIDEX [Suspect]
     Active Substance: ANASTROZOLE
     Indication: BLOOD TESTOSTERONE DECREASED
     Dosage: 0.5MG WEEKLY ON WEDNESDAYS, THE INCREASED TO 1 MG EVERY WEEK APPROXIMATELY DEC-2018
     Route: 048
     Dates: start: 201807
  2. SIMVASTATIN. [Concomitant]
     Active Substance: SIMVASTATIN
  3. UNSPECIFIED BLOOD PRESSURE MEDICATION [Concomitant]
     Active Substance: UNSPECIFIED INGREDIENT
  4. TESTOSTERONE INJECTIONS [Concomitant]
     Active Substance: TESTOSTERONE
     Dosage: ONCE WEEKLY ON TUESDAYS

REACTIONS (2)
  - Skin odour abnormal [Unknown]
  - Off label use [Unknown]

NARRATIVE: CASE EVENT DATE: 201807
